FAERS Safety Report 25247722 (Version 1)
Quarter: 2025Q2

REPORT INFORMATION
  Report Type: Spontaneous
  Country: US (occurrence: US)
  Receive Date: 20250428
  Receipt Date: 20250428
  Transmission Date: 20250716
  Serious: Yes (Death)
  Sender: AMGEN
  Company Number: US-AMGEN-USASP2025081000

PATIENT

DRUGS (1)
  1. RITUXIMAB [Suspect]
     Active Substance: RITUXIMAB
     Indication: Thrombotic microangiopathy
     Route: 065

REACTIONS (6)
  - Death [Fatal]
  - Thrombotic microangiopathy [Fatal]
  - Graft versus host disease [Fatal]
  - Infection [Fatal]
  - Organ failure [Fatal]
  - Off label use [Unknown]
